FAERS Safety Report 6161715-0 (Version None)
Quarter: 2009Q2

REPORT INFORMATION
  Report Type: 
  Country: None (occurrence: None)
  Receive Date: 20090421
  Receipt Date: 20090413
  Transmission Date: 20091009
  Serious: Yes (Hospitalization, Other)
  Sender: FDA-Public Use
  Company Number: US-ROCHE-626429

PATIENT
  Sex: Female

DRUGS (4)
  1. PEG-INTERFERON A-2A (RO 25-8310) [Suspect]
     Indication: HEPATITIS C
     Route: 065
     Dates: start: 20081001, end: 20081001
  2. PEG-INTERFERON A-2A (RO 25-8310) [Suspect]
     Dosage: FORM: PRE FILLED SYRINGE
     Route: 065
     Dates: start: 20090301
  3. RIBAVIRIN [Suspect]
     Indication: HEPATITIS C
     Route: 065
     Dates: start: 20081001, end: 20081001
  4. RIBAVIRIN [Suspect]
     Route: 065
     Dates: start: 20090301

REACTIONS (6)
  - CONVULSION [None]
  - LOSS OF CONSCIOUSNESS [None]
  - MENTAL STATUS CHANGES [None]
  - MUSCLE SPASMS [None]
  - NEUROPATHY PERIPHERAL [None]
  - TETANY [None]
